FAERS Safety Report 4288607-6 (Version None)
Quarter: 2004Q1

REPORT INFORMATION
  Report Type: 
  Country: None (occurrence: None)
  Receive Date: 20040209
  Receipt Date: 20031208
  Transmission Date: 20041129
  Serious: Yes (Other)
  Sender: FDA-Public Use
  Company Number: AU-GLAXOSMITHKLINE-B0317612A

PATIENT
  Age: 28 Year
  Sex: Female
  Weight: 44 kg

DRUGS (3)
  1. ZYBAN [Suspect]
     Dosage: 150MG TWICE PER DAY
  2. CIPRAMIL [Concomitant]
     Indication: DEPRESSION
     Dates: start: 20030619
  3. MICROGYNON [Concomitant]
     Indication: CONTRACEPTION

REACTIONS (6)
  - ABNORMAL DREAMS [None]
  - ANAPHYLACTIC REACTION [None]
  - DRY MOUTH [None]
  - HEADACHE [None]
  - NIGHT SWEATS [None]
  - RESTLESS LEGS SYNDROME [None]
